FAERS Safety Report 11156226 (Version 1)
Quarter: 2015Q2

REPORT INFORMATION
  Report Type: Spontaneous
  Country: MX (occurrence: MX)
  Receive Date: 20150602
  Receipt Date: 20150602
  Transmission Date: 20150821
  Serious: Yes (Other)
  Sender: FDA-Public Use
  Company Number: MX-JNJFOC-20150519220

PATIENT
  Sex: Female
  Weight: 57 kg

DRUGS (3)
  1. PEGYLATED INTERFERON NOS [Concomitant]
     Active Substance: PEGINTERFERON ALFA-2A OR PEGINTERFERON ALFA-2B OR PEGINTERFERON BETA-1A OR PEGINTERFERON LAMBDA-1A
     Indication: HEPATITIS C
     Route: 065
     Dates: start: 20150226
  2. OLYSIO [Suspect]
     Active Substance: SIMEPREVIR
     Indication: HEPATITIS C
     Route: 048
     Dates: start: 20150226, end: 20150515
  3. VIRAZID [Concomitant]
     Indication: HEPATITIS C
     Route: 048
     Dates: start: 20150226

REACTIONS (7)
  - Pain [Unknown]
  - Back pain [Unknown]
  - Insomnia [Unknown]
  - Pruritus [Unknown]
  - Epistaxis [Unknown]
  - Pruritus generalised [Unknown]
  - Pain of skin [Unknown]
